FAERS Safety Report 14993827 (Version 1)
Quarter: 2018Q2

REPORT INFORMATION
  Report Type: Spontaneous
  Country: FR (occurrence: FR)
  Receive Date: 20180611
  Receipt Date: 20180611
  Transmission Date: 20180711
  Serious: Yes (Death, Hospitalization)
  Sender: FDA-Public Use
  Company Number: FR-TEVA-2018-FR-904643

PATIENT
  Age: 77 Year
  Sex: Male

DRUGS (17)
  1. TARDYFERON [Concomitant]
     Active Substance: FERROUS SULFATE
  2. LOXAPAC, SOLUTION BUVABLE [Concomitant]
     Active Substance: LOXAPINE
  3. MACROGOL 1000 [Concomitant]
  4. NOCTAMIDE 2 MG, COMPRIM? S?CABLE [Concomitant]
     Active Substance: LORMETAZEPAM
  5. IXPRIM [Concomitant]
     Active Substance: ACETAMINOPHEN\TRAMADOL HYDROCHLORIDE
  6. ATARAX 25 MG, COMPRIM? PELLICUL? S?CABLE [Concomitant]
  7. ACIDE FOLIQUE [Concomitant]
     Active Substance: FOLIC ACID
  8. PRAVASTATINE SODIQUE [Concomitant]
     Active Substance: PRAVASTATIN SODIUM
  9. PARKINANE L P 5 MG, G?LULE ? LIB?RATION PROLONG?E [Concomitant]
     Active Substance: TRIHEXYPHENIDYL HYDROCHLORIDE
  10. AMLODIPINE [Concomitant]
     Active Substance: AMLODIPINE BESYLATE
  11. DIFFU K, G?LULE [Concomitant]
     Active Substance: POTASSIUM CHLORIDE
  12. ESOMEPRAZOLE [Concomitant]
     Active Substance: ESOMEPRAZOLE
  13. KARDEGIC [Concomitant]
     Active Substance: ASPIRIN DL-LYSINE
  14. ALLOPURINOL. [Concomitant]
     Active Substance: ALLOPURINOL
  15. LOVENOX [Concomitant]
     Active Substance: ENOXAPARIN SODIUM
  16. IRINOTECAN [Suspect]
     Active Substance: IRINOTECAN
     Indication: NEUROENDOCRINE CARCINOMA
     Route: 042
     Dates: start: 20160322, end: 20160322
  17. LORAZEPAM. [Concomitant]
     Active Substance: LORAZEPAM

REACTIONS (7)
  - Acute kidney injury [Recovered/Resolved]
  - Dehydration [Recovered/Resolved]
  - Respiratory distress [Fatal]
  - Diarrhoea [Recovering/Resolving]
  - Dyspnoea [Unknown]
  - Asthenia [Unknown]
  - General physical health deterioration [Unknown]

NARRATIVE: CASE EVENT DATE: 20160329
